FAERS Safety Report 6424703-2 (Version None)
Quarter: 2009Q4

REPORT INFORMATION
  Report Type: 
  Country: None (occurrence: None)
  Receive Date: 20091102
  Receipt Date: 20091102
  Transmission Date: 20100525
  Serious: Yes (Hospitalization)
  Sender: FDA-Public Use
  Company Number: None

PATIENT
  Age: 58 Year

DRUGS (1)
  1. HYALURONATE SODIUM [Suspect]
     Indication: ARTHRALGIA
     Dosage: 20 MG ONCE OTHER
     Route: 050
     Dates: start: 20090313, end: 20090320

REACTIONS (4)
  - EYE ROLLING [None]
  - LOSS OF CONSCIOUSNESS [None]
  - PRESYNCOPE [None]
  - RESPIRATORY ARREST [None]
